FAERS Safety Report 10045524 (Version 1)
Quarter: 2014Q1

REPORT INFORMATION
  Report Type: Spontaneous
  Country: US (occurrence: PL)
  Receive Date: 20140328
  Receipt Date: 20140328
  Transmission Date: 20141002
  Serious: Yes (Other)
  Sender: FDA-Public Use
  Company Number: PL-FRI-1000065857

PATIENT
  Age: 82 Year
  Sex: Male
  Weight: 64 kg

DRUGS (2)
  1. ROFLUMILAST [Suspect]
     Dosage: 500 MCG
     Route: 048
     Dates: start: 20131220
  2. ROFLUMILAST [Suspect]
     Dosage: 250 MCG
     Route: 048

REACTIONS (5)
  - Drug tolerance decreased [Recovering/Resolving]
  - Diarrhoea [Recovering/Resolving]
  - Weight decreased [Recovering/Resolving]
  - Decreased appetite [Recovering/Resolving]
  - Off label use [Not Recovered/Not Resolved]
